FAERS Safety Report 6473125-7 (Version None)
Quarter: 2009Q4

REPORT INFORMATION
  Report Type: 
  Country: None (occurrence: None)
  Receive Date: 20091204
  Receipt Date: 20080702
  Transmission Date: 20100525
  Serious: Yes (Other)
  Sender: FDA-Public Use
  Company Number: US-ELI_LILLY_AND_COMPANY-US200806004915

PATIENT
  Sex: Male
  Weight: 82.54 kg

DRUGS (13)
  1. TERIPARATIDE [Suspect]
     Indication: OSTEOPOROSIS
     Dosage: 20 UG, DAILY (1/D)
     Route: 058
     Dates: start: 20060629
  2. KLOR-CON [Concomitant]
     Indication: MINERAL SUPPLEMENTATION
     Dates: start: 20050830
  3. PREDNISONE [Concomitant]
     Indication: RHEUMATOID ARTHRITIS
     Dates: start: 20020125
  4. METHOTREXATE [Concomitant]
     Indication: RHEUMATOID ARTHRITIS
     Dates: start: 20020125
  5. CALCIUM WITH VITAMIN D [Concomitant]
     Indication: MEDICAL DIET
     Dates: start: 20040415
  6. VITAMIN E [Concomitant]
     Indication: MEDICAL DIET
     Dates: start: 20061025
  7. FOLIC ACID [Concomitant]
     Indication: MEDICAL DIET
     Dates: start: 20060131
  8. LANOXIN [Concomitant]
     Indication: HYPERTENSION
     Dates: start: 20020125
  9. METOPROLOL [Concomitant]
     Indication: HYPERTENSION
     Dates: start: 20020125
  10. ASPIRIN [Concomitant]
     Indication: CARDIOVASCULAR EVENT PROPHYLAXIS
     Dates: start: 20020125
  11. MULTI-VITAMIN [Concomitant]
     Indication: MEDICAL DIET
     Dates: start: 20040415
  12. LASIX [Concomitant]
     Indication: HYPERTENSION
     Dates: start: 20030709
  13. NORVASC [Concomitant]
     Indication: HYPERTENSION
     Dates: start: 20020125

REACTIONS (1)
  - PROSTATE CANCER [None]
